FAERS Safety Report 17875043 (Version 1)
Quarter: 2020Q2

REPORT INFORMATION
  Report Type: Spontaneous
  Country: US (occurrence: US)
  Receive Date: 20200609
  Receipt Date: 20200609
  Transmission Date: 20200714
  Serious: Yes (Other)
  Sender: FDA-Public Use
  Company Number: US-PFIZER INC-2020223686

PATIENT
  Age: 64 Year
  Sex: Female
  Weight: 99.79 kg

DRUGS (1)
  1. PRISTIQ EXTENDED-RELEASE [Suspect]
     Active Substance: DESVENLAFAXINE SUCCINATE
     Indication: DEPRESSION
     Dosage: 50 MG, DAILY (50MG 1 TABLET BY MOUTH DAILY)
     Route: 048

REACTIONS (2)
  - Visual impairment [Unknown]
  - Weight increased [Unknown]
